FAERS Safety Report 8373475-3 (Version None)
Quarter: 2012Q2

REPORT INFORMATION
  Report Type: 
  Country: None (occurrence: None)
  Receive Date: 20120521
  Receipt Date: 20110721
  Transmission Date: 20120825
  Serious: Yes (Other)
  Sender: FDA-Public Use
  Company Number: US-TEVA-2011003204

PATIENT
  Sex: Female
  Weight: 81.538 kg

DRUGS (10)
  1. ALLOPURINOL [Concomitant]
  2. TREANDA [Suspect]
     Indication: CHRONIC LYMPHOCYTIC LEUKAEMIA
     Route: 042
     Dates: start: 20101013, end: 20101110
  3. CRESTOR [Concomitant]
  4. ALBUTEROL [Concomitant]
  5. RITUXAN [Concomitant]
  6. FEXOFENADINE [Concomitant]
  7. LISINOPRIL [Concomitant]
  8. ADVAIR DISKUS 100/50 [Concomitant]
  9. HYDROCHLOROTHIAZIDE [Concomitant]
  10. METFORMIN HCL [Concomitant]

REACTIONS (1)
  - RASH MACULAR [None]
